FAERS Safety Report 6504587-4 (Version None)
Quarter: 2009Q4

REPORT INFORMATION
  Report Type: 
  Country: None (occurrence: None)
  Receive Date: 20091215
  Receipt Date: 20091204
  Transmission Date: 20100525
  Serious: Yes (Hospitalization)
  Sender: FDA-Public Use
  Company Number: 2009AC000455

PATIENT
  Age: 80 Year
  Sex: Male

DRUGS (18)
  1. DIGOXIN [Suspect]
     Dosage: 0.125 MG; PO
     Route: 048
     Dates: start: 19870101
  2. METOPROLOL TARTRATE [Concomitant]
  3. VITAMIN B-12 [Concomitant]
  4. COLCHICINE [Concomitant]
  5. COUMADIN [Concomitant]
  6. ALLOPURINOL [Concomitant]
  7. FOLIC ACID [Concomitant]
  8. LASIX [Concomitant]
  9. GLYBURIDE [Concomitant]
  10. METFORM [Concomitant]
  11. FINASTERIDE [Concomitant]
  12. FUROSEMIDE [Concomitant]
  13. LOVASTATIN [Concomitant]
  14. ENALAPRIL [Concomitant]
  15. FLEXERIL [Concomitant]
  16. ALLOPURINOL [Concomitant]
  17. NASALCROM [Concomitant]
  18. VITAMIN B-12 [Concomitant]

REACTIONS (14)
  - AORTIC ANEURYSM [None]
  - ATRIAL FIBRILLATION [None]
  - CARDIAC DISORDER [None]
  - DIPLOPIA [None]
  - DYSPNOEA [None]
  - EYELID PTOSIS [None]
  - GOUT [None]
  - HEADACHE [None]
  - INJURY [None]
  - LUNG NEOPLASM MALIGNANT [None]
  - MYOCARDIAL INFARCTION [None]
  - PERIPHERAL ARTERY ANEURYSM [None]
  - PROSTATE CANCER [None]
  - RENAL IMPAIRMENT [None]
